FAERS Safety Report 7514919-6 (Version None)
Quarter: 2011Q2

REPORT INFORMATION
  Report Type: 
  Country: None (occurrence: None)
  Receive Date: 20110601
  Receipt Date: 20110426
  Transmission Date: 20111010
  Serious: Yes (Hospitalization)
  Sender: FDA-Public Use
  Company Number: US-BAYER-2011-008161

PATIENT
  Age: 27 Year
  Sex: Female
  Weight: 63.492 kg

DRUGS (11)
  1. CALNATE [Concomitant]
  2. YASMIN [Suspect]
     Indication: ACNE
     Dosage: UNK
     Dates: start: 20080101, end: 20090101
  3. NEXIUM [Concomitant]
     Dosage: 40 MG, QD
     Route: 048
     Dates: start: 20090103
  4. LORTAB [Concomitant]
     Indication: PAIN
     Dosage: 7.5/ONE EVERY 4-6 HOURS AS NEEDED
     Route: 048
     Dates: start: 20081115
  5. YAZ [Suspect]
     Indication: CONTRACEPTION
  6. DROSPIRENONE AND ETHINYL ESTRADIOL [Suspect]
     Indication: ACNE
     Dosage: UNK
     Dates: start: 20080101, end: 20090101
  7. YASMIN [Suspect]
     Indication: CONTRACEPTION
  8. DROSPIRENONE AND ETHINYL ESTRADIOL [Suspect]
     Indication: CONTRACEPTION
  9. FLEXERIL [Concomitant]
     Indication: BACK PAIN
     Dosage: 10 MG, TID
     Route: 048
     Dates: start: 20081115
  10. YAZ [Suspect]
     Indication: ACNE
     Dosage: UNK
     Dates: start: 20080101, end: 20090101
  11. REGLAN [Concomitant]
     Dosage: 10 MG, QID
     Route: 048
     Dates: start: 20090103

REACTIONS (4)
  - PAIN [None]
  - PANCREATITIS [None]
  - INJURY [None]
  - CHOLELITHIASIS [None]
